FAERS Safety Report 14278273 (Version 7)
Quarter: 2022Q2

REPORT INFORMATION
  Report Type: Spontaneous
  Country: US (occurrence: US)
  Receive Date: 20171212
  Receipt Date: 20220608
  Transmission Date: 20220721
  Serious: Yes (Other)
  Sender: FDA-Public Use
  Company Number: US-PFIZER INC-2017531083

PATIENT
  Age: 65 Year
  Sex: Female
  Weight: 76 kg

DRUGS (4)
  1. XELJANZ XR [Suspect]
     Active Substance: TOFACITINIB CITRATE
     Indication: Rheumatoid arthritis
     Dosage: 11 MG, 1X/DAY
     Route: 048
     Dates: start: 2011
  2. XELJANZ XR [Suspect]
     Active Substance: TOFACITINIB CITRATE
     Dosage: 11 MG, DAILY
     Dates: start: 201711, end: 20180108
  3. VASOTEC [Concomitant]
     Active Substance: ENALAPRIL MALEATE
     Indication: Hypertension
     Dosage: 2.5 MG, 1X/DAY
     Route: 048
  4. METFORMIN [Concomitant]
     Active Substance: METFORMIN HYDROCHLORIDE
     Indication: Type 2 diabetes mellitus
     Dosage: 500 MG, 1X/DAY
     Route: 048

REACTIONS (7)
  - Pneumonia [Unknown]
  - Illness [Unknown]
  - Intentional product misuse [Unknown]
  - Product prescribing error [Unknown]
  - Pain [Recovered/Resolved]
  - Pain [Unknown]
  - Product dose omission issue [Unknown]

NARRATIVE: CASE EVENT DATE: 20171101
